FAERS Safety Report 8608920-9 (Version None)
Quarter: 2012Q3

REPORT INFORMATION
  Report Type: 
  Country: None (occurrence: None)
  Receive Date: 20120821
  Receipt Date: 20120810
  Transmission Date: 20120928
  Serious: No
  Sender: FDA-Public Use
  Company Number: US-ASTRAZENECA-2012SE56741

PATIENT
  Age: 55 Year
  Sex: Female

DRUGS (6)
  1. SEROQUEL XR [Suspect]
     Indication: BIPOLAR DISORDER
     Route: 048
     Dates: start: 20070101
  2. WELLBUTRIN [Concomitant]
  3. CITALOPRAM HYDROBROMIDE [Concomitant]
  4. TRAZODONE HYDROCHLORIDE [Concomitant]
  5. LEVOTHYROXINE SODIUM [Concomitant]
     Indication: THYROID DISORDER
  6. VICODIN [Concomitant]
     Indication: BACK DISORDER

REACTIONS (2)
  - DRUG DOSE OMISSION [None]
  - INSOMNIA [None]
